FAERS Safety Report 6028336-1 (Version None)
Quarter: 2009Q1

REPORT INFORMATION
  Report Type: 
  Country: None (occurrence: None)
  Receive Date: 20090106
  Receipt Date: 20081226
  Transmission Date: 20090719
  Serious: Yes (Hospitalization, Other)
  Sender: FDA-Public Use
  Company Number: JP-ELI_LILLY_AND_COMPANY-JP200809000413

PATIENT
  Age: 82 Year
  Sex: Male

DRUGS (6)
  1. GEMZAR [Suspect]
     Indication: SMALL INTESTINE CARCINOMA
     Dosage: 1200 MG, UNK
     Route: 042
     Dates: start: 20070122, end: 20070619
  2. TS 1 /JPN/ [Concomitant]
     Indication: SMALL INTESTINE CARCINOMA
     Dosage: 80 MG, DAILY (1/D)
     Route: 048
     Dates: start: 20070521, end: 20070625
  3. WARFARIN [Concomitant]
     Indication: JUGULAR VEIN THROMBOSIS
     Dosage: 3MG, DAILY (1/D)
     Route: 048
     Dates: start: 20070314, end: 20070706
  4. WARFARIN [Concomitant]
     Dosage: 1 MG, DAILY (1/D)
     Route: 048
     Dates: start: 20070719
  5. MELOXICAM [Concomitant]
     Dosage: 10 MG, DAILY (1/D)
     Route: 065
     Dates: start: 20070713, end: 20070731
  6. OMEPRAZOLE [Concomitant]
     Dosage: 20 MG, DAILY (1/D)
     Route: 065
     Dates: start: 20070709, end: 20070724

REACTIONS (6)
  - GINGIVAL BLEEDING [None]
  - HAEMATURIA [None]
  - JUGULAR VEIN THROMBOSIS [None]
  - LYMPHOEDEMA [None]
  - METASTASES TO LYMPH NODES [None]
  - PULMONARY EMBOLISM [None]
